FAERS Safety Report 9417716 (Version 1)
Quarter: 2013Q3

REPORT INFORMATION
  Report Type: Spontaneous
  Country: GB (occurrence: GB)
  Receive Date: 20130724
  Receipt Date: 20130724
  Transmission Date: 20140515
  Serious: Yes (Other)
  Sender: FDA-Public Use
  Company Number: GB-CUBIST PHARMACEUTICAL, INC.-2013CBST000630

PATIENT
  Sex: 0

DRUGS (3)
  1. CUBICIN [Suspect]
     Indication: SKIN INFECTION
     Dosage: UNK UNK, UNK
     Route: 065
  2. CUBICIN [Suspect]
     Indication: ENTEROCOCCAL INFECTION
  3. CUBICIN [Suspect]
     Indication: OFF LABEL USE

REACTIONS (1)
  - Osteomyelitis [Unknown]
